FAERS Safety Report 7770580-7 (Version None)
Quarter: 2011Q3

REPORT INFORMATION
  Report Type: 
  Country: None (occurrence: None)
  Receive Date: 20110922
  Receipt Date: 20110915
  Transmission Date: 20111222
  Serious: Yes (Other)
  Sender: FDA-Public Use
  Company Number: PHHY2011NL82470

PATIENT
  Sex: Male
  Weight: 74 kg

DRUGS (1)
  1. EXELON [Suspect]
     Indication: DEMENTIA
     Dosage: 4.6 MG, QD
     Route: 062
     Dates: start: 20110614, end: 20110701

REACTIONS (1)
  - SUICIDAL IDEATION [None]
